FAERS Safety Report 8384891 (Version 7)
Quarter: 2012Q4

REPORT INFORMATION
  Report Type: 
  Country: US (occurrence: US)
  Receive Date: 20120202
  Receipt Date: 20121205
  Transmission Date: 20130627
  Serious: Yes (Other)
  Sender: FDA-Public Use
  Company Number: US-PFIZER INC-2012026005

PATIENT
  Age: 60 Year
  Sex: Female
  Weight: 94 kg

DRUGS (10)
  1. NEURONTIN [Suspect]
     Indication: NEUROPATHY
     Dosage: 100 mg, 3x/day
     Route: 048
     Dates: start: 2008
  2. NEURONTIN [Suspect]
     Dosage: 900 mg, 3x/day
     Route: 048
     Dates: end: 2011
  3. NEURONTIN [Suspect]
     Dosage: 1200 mg (800mg tablet and 400mg capsule), 3x/day
     Route: 048
     Dates: start: 2011
  4. NEURONTIN [Suspect]
     Dosage: UNK, 3x/day
     Route: 048
  5. VENTOLIN [Concomitant]
     Indication: SHORTNESS OF BREATH
     Dosage: 10% once every four hours
  6. TOPROL XL [Concomitant]
     Dosage: 200 mg, 2x/day
     Dates: start: 2009
  7. TOPROL XL [Concomitant]
     Dosage: UNK
  8. BACTRIM DS [Concomitant]
     Dosage: 800-160  twice daily
  9. ESTRADIOL [Concomitant]
     Dosage: UNK
  10. CYMBALTA [Concomitant]
     Dosage: UNK

REACTIONS (7)
  - Meningitis [Unknown]
  - Infection [Unknown]
  - Meniscus injury [Unknown]
  - Spinal fracture [Unknown]
  - Nasopharyngitis [Not Recovered/Not Resolved]
  - Ear pain [Not Recovered/Not Resolved]
  - Muscle spasms [Recovering/Resolving]
